FAERS Safety Report 21632896 (Version 3)
Quarter: 2022Q4

REPORT INFORMATION
  Report Type: Spontaneous
  Country: US (occurrence: US)
  Receive Date: 20221123
  Receipt Date: 20221129
  Transmission Date: 20230113
  Serious: Yes (Other)
  Sender: FDA-Public Use
  Company Number: US-BAYER-2022A157793

PATIENT
  Sex: Female

DRUGS (1)
  1. KYLEENA [Suspect]
     Active Substance: LEVONORGESTREL
     Indication: Contraception
     Dosage: 17.5?G/DAY
     Route: 015
     Dates: start: 20210304, end: 20221110

REACTIONS (6)
  - Embedded device [None]
  - Pregnancy with contraceptive device [None]
  - Drug ineffective [None]
  - Device breakage [None]
  - Complication of pregnancy [None]
  - Procedural pain [None]

NARRATIVE: CASE EVENT DATE: 20220101
